FAERS Safety Report 12264032 (Version 1)
Quarter: 2016Q2

REPORT INFORMATION
  Report Type: Spontaneous
  Country: US (occurrence: US)
  Receive Date: 20160413
  Receipt Date: 20160413
  Transmission Date: 20160815
  Serious: No
  Sender: FDA-Public Use
  Company Number: US-JNJFOC-20160309201

PATIENT
  Age: 2 Year
  Sex: Female

DRUGS (9)
  1. CHILDRENS MOTRIN [Suspect]
     Active Substance: IBUPROFEN
     Indication: PYREXIA
     Dosage: DOSING WAS ALTERNATED WITH CHILDREN^S TYLENOL
     Route: 048
     Dates: start: 201602
  2. CHILDRENS TYLENOL [Concomitant]
     Active Substance: ACETAMINOPHEN
     Indication: SKIN DISCOLOURATION
     Route: 048
     Dates: start: 201602
  3. CHILDRENS MOTRIN [Suspect]
     Active Substance: IBUPROFEN
     Indication: PYREXIA
     Dosage: ACCIDENTALLY GAVE THE PATIENT 10ML INSTEAD OF 5ML.
     Route: 048
     Dates: start: 20160307
  4. CHILDRENS MOTRIN [Suspect]
     Active Substance: IBUPROFEN
     Indication: SKIN DISCOLOURATION
     Dosage: ACCIDENTALLY GAVE THE PATIENT 10ML INSTEAD OF 5ML.
     Route: 048
     Dates: start: 20160307
  5. CHILDRENS MOTRIN [Suspect]
     Active Substance: IBUPROFEN
     Indication: INFECTION
     Dosage: ACCIDENTALLY GAVE THE PATIENT 10ML INSTEAD OF 5ML.
     Route: 048
     Dates: start: 20160307
  6. CHILDRENS TYLENOL [Concomitant]
     Active Substance: ACETAMINOPHEN
     Indication: PYREXIA
     Route: 048
     Dates: start: 201602
  7. CHILDRENS MOTRIN [Suspect]
     Active Substance: IBUPROFEN
     Indication: SKIN DISCOLOURATION
     Dosage: DOSING WAS ALTERNATED WITH CHILDREN^S TYLENOL
     Route: 048
     Dates: start: 201602
  8. CHILDRENS MOTRIN [Suspect]
     Active Substance: IBUPROFEN
     Indication: INFECTION
     Dosage: DOSING WAS ALTERNATED WITH CHILDREN^S TYLENOL
     Route: 048
     Dates: start: 201602
  9. CHILDRENS TYLENOL [Concomitant]
     Active Substance: ACETAMINOPHEN
     Indication: INFECTION
     Route: 048
     Dates: start: 201602

REACTIONS (5)
  - Off label use [Not Recovered/Not Resolved]
  - Product use issue [Not Recovered/Not Resolved]
  - Somnolence [Not Recovered/Not Resolved]
  - Drug effect incomplete [Not Recovered/Not Resolved]
  - Extra dose administered [Not Recovered/Not Resolved]

NARRATIVE: CASE EVENT DATE: 2016
